FAERS Safety Report 7794425-4 (Version None)
Quarter: 2011Q4

REPORT INFORMATION
  Report Type: 
  Country: None (occurrence: None)
  Receive Date: 20111004
  Receipt Date: 20111004
  Transmission Date: 20120403
  Serious: Yes (Other)
  Sender: FDA-Public Use
  Company Number: None

PATIENT
  Age: 43 Year
  Sex: Female
  Weight: 125.19 kg

DRUGS (1)
  1. HIZENTRA [Suspect]
     Dosage: 20 GM/100 ML
     Route: 058
     Dates: start: 20100701, end: 20111001

REACTIONS (3)
  - PARAESTHESIA [None]
  - PHARYNGEAL HYPOAESTHESIA [None]
  - HYPOAESTHESIA ORAL [None]
